FAERS Safety Report 5056093-4 (Version None)
Quarter: 2006Q2

REPORT INFORMATION
  Report Type: 
  Country: None (occurrence: None)
  Receive Date: 20060616
  Receipt Date: 20060411
  Transmission Date: 20061013
  Serious: No
  Sender: FDA-Public Use
  Company Number: 2006US000416

PATIENT
  Sex: Female

DRUGS (1)
  1. VESICARE [Suspect]
     Dosage: 5 MG, TOTAL DOSE

REACTIONS (5)
  - BREAST PAIN [None]
  - DYSPHONIA [None]
  - PRURITUS [None]
  - RASH MORBILLIFORM [None]
  - SWELLING [None]
